FAERS Safety Report 13025328 (Version 2)
Quarter: 2016Q4

REPORT INFORMATION
  Report Type: Report from Study
  Country: US (occurrence: US)
  Receive Date: 20161214
  Receipt Date: 20161219
  Transmission Date: 20170207
  Serious: No
  Sender: FDA-Public Use
  Company Number: PHEH2016US032067

PATIENT
  Age: 30 Year
  Sex: Female
  Weight: 81.6 kg

DRUGS (1)
  1. EXTAVIA [Suspect]
     Active Substance: INTERFERON BETA-1B
     Indication: MULTIPLE SCLEROSIS
     Dosage: 0.0625 MG (0.25 ML), QOD FOR WEEK 1 TO 2
     Route: 058
     Dates: start: 20161205

REACTIONS (6)
  - Skin disorder [Recovered/Resolved]
  - Drug dose omission [Unknown]
  - Drug administration error [Unknown]
  - Injury associated with device [Unknown]
  - Haemorrhage [Recovered/Resolved]
  - Device malfunction [Recovered/Resolved]

NARRATIVE: CASE EVENT DATE: 20161207
